FAERS Safety Report 10044722 (Version 1)
Quarter: 2014Q1

REPORT INFORMATION
  Report Type: Spontaneous
  Country: US (occurrence: US)
  Receive Date: 20140328
  Receipt Date: 20140328
  Transmission Date: 20141002
  Serious: Yes (Other)
  Sender: FDA-Public Use
  Company Number: US-ENDO PHARMACEUTICALS INC.-OPCR20140095

PATIENT
  Age: 25 Year
  Sex: Female

DRUGS (2)
  1. OPANA ER [Suspect]
     Indication: PAIN
     Route: 048
     Dates: start: 20130513
  2. OPANA ER [Suspect]
     Route: 048

REACTIONS (5)
  - Cholelithiasis [Recovered/Resolved]
  - Suicidal ideation [Unknown]
  - Weight decreased [Unknown]
  - Impaired gastric emptying [Unknown]
  - Vomiting [Unknown]
